FAERS Safety Report 14336618 (Version 1)
Quarter: 2017Q4

REPORT INFORMATION
  Report Type: Spontaneous
  Country: US (occurrence: US)
  Receive Date: 20171229
  Receipt Date: 20171229
  Transmission Date: 20180321
  Serious: Yes (Death, Hospitalization, Other)
  Sender: FDA-Public Use
  Company Number: US-APOTEX-2017AP022919

PATIENT
  Age: 34 Year
  Sex: Male

DRUGS (9)
  1. METFORMIN [Suspect]
     Active Substance: METFORMIN HYDROCHLORIDE
     Dosage: UNK INHALATION
     Route: 050
  2. COCAINE [Suspect]
     Active Substance: COCAINE
     Indication: PRODUCT USED FOR UNKNOWN INDICATION
     Dosage: UNK
     Route: 048
  3. OXYCODONE [Suspect]
     Active Substance: OXYCODONE
     Indication: PRODUCT USED FOR UNKNOWN INDICATION
     Dosage: UNK
     Route: 048
  4. METFORMIN [Suspect]
     Active Substance: METFORMIN HYDROCHLORIDE
     Indication: PRODUCT USED FOR UNKNOWN INDICATION
     Dosage: UNK, INGST+INHAL+ASPIR
     Route: 050
  5. OXYCODONE [Suspect]
     Active Substance: OXYCODONE
     Dosage: UNK ASPIR
     Route: 050
  6. METFORMIN [Suspect]
     Active Substance: METFORMIN HYDROCHLORIDE
     Dosage: UNK ASPIRATION
     Route: 050
  7. OXYCODONE [Suspect]
     Active Substance: OXYCODONE
     Dosage: UNK INHAL
     Route: 050
  8. COCAINE [Suspect]
     Active Substance: COCAINE
     Dosage: UNK ASPIR
     Route: 050
  9. COCAINE [Suspect]
     Active Substance: COCAINE
     Dosage: UNK INHAL
     Route: 050

REACTIONS (2)
  - Cardio-respiratory arrest [Fatal]
  - Completed suicide [Fatal]
